FAERS Safety Report 4519545-9 (Version None)
Quarter: 2004Q4

REPORT INFORMATION
  Report Type: 
  Country: None (occurrence: None)
  Receive Date: 20041206
  Receipt Date: 20040701
  Transmission Date: 20050328
  Serious: Yes (Hospitalization, Disabling)
  Sender: FDA-Public Use
  Company Number: JP-MERCK-0407USA00316

PATIENT
  Age: 61 Year
  Sex: Female

DRUGS (3)
  1. FOSAMAX [Suspect]
     Indication: OSTEOPOROSIS
     Route: 048
     Dates: start: 20040301, end: 20040501
  2. SOLETON [Suspect]
     Indication: OSTEOPOROSIS
     Route: 048
     Dates: end: 20040501
  3. FAMOTIDINE [Suspect]
     Indication: GASTRIC ULCER
     Route: 048
     Dates: end: 20040501

REACTIONS (10)
  - ALANINE AMINOTRANSFERASE INCREASED [None]
  - ASPARTATE AMINOTRANSFERASE INCREASED [None]
  - BLOOD ALKALINE PHOSPHATASE INCREASED [None]
  - BLOOD LACTATE DEHYDROGENASE INCREASED [None]
  - BONE MARROW DEPRESSION [None]
  - HYPOPROTEINAEMIA [None]
  - JAUNDICE [None]
  - LIVER DISORDER [None]
  - PAIN [None]
  - PLATELET COUNT DECREASED [None]
